FAERS Safety Report 5929739-3 (Version None)
Quarter: 2008Q4

REPORT INFORMATION
  Report Type: 
  Country: None (occurrence: None)
  Receive Date: 20081024
  Receipt Date: 20081017
  Transmission Date: 20090506
  Serious: Yes (Hospitalization, Disabling)
  Sender: FDA-Public Use
  Company Number: CH-JNJFOC-20081003948

PATIENT
  Age: 70 Year
  Sex: Female

DRUGS (4)
  1. HALDOL [Suspect]
     Indication: SCHIZOPHRENIA, PARANOID TYPE
     Route: 048
  2. PRAZINE [Concomitant]
     Indication: SCHIZOPHRENIA, PARANOID TYPE
     Route: 048
  3. AKINETON [Concomitant]
     Indication: MOVEMENT DISORDER
     Route: 048
  4. AKINETON [Concomitant]
     Indication: EXTRAPYRAMIDAL DISORDER
     Route: 048

REACTIONS (5)
  - EXTRAPYRAMIDAL DISORDER [None]
  - FALL [None]
  - FEMUR FRACTURE [None]
  - FRACTURE [None]
  - TARDIVE DYSKINESIA [None]
